FAERS Safety Report 26095542 (Version 1)
Quarter: 2025Q4

REPORT INFORMATION
  Report Type: Spontaneous
  Country: US (occurrence: None)
  Receive Date: 20251127
  Receipt Date: 20251127
  Transmission Date: 20260117
  Serious: Yes (Other)
  Sender: APOTEX
  Company Number: US-APOTEX-2025AP033106

PATIENT
  Age: 26 Year
  Sex: Female

DRUGS (4)
  1. OLANZAPINE [Suspect]
     Active Substance: OLANZAPINE
     Indication: Neuromyelitis optica spectrum disorder
     Dosage: UNK
     Route: 065
  2. OLANZAPINE [Suspect]
     Active Substance: OLANZAPINE
     Indication: Delusion of parasitosis
  3. HALOPERIDOL [Suspect]
     Active Substance: HALOPERIDOL
     Indication: Neuromyelitis optica spectrum disorder
     Dosage: UNK
     Route: 065
  4. HALOPERIDOL [Suspect]
     Active Substance: HALOPERIDOL
     Indication: Delusion of parasitosis

REACTIONS (1)
  - Dystonia [Unknown]
